FAERS Safety Report 20067961 (Version 1)
Quarter: 2021Q4

REPORT INFORMATION
  Report Type: Spontaneous
  Country: CN (occurrence: CN)
  Receive Date: 20211115
  Receipt Date: 20211115
  Transmission Date: 20220303
  Serious: Yes (Other)
  Sender: FDA-Public Use
  Company Number: CN-BAXTER-2021BAX035316

PATIENT
  Age: 65 Year
  Sex: Female
  Weight: 40 kg

DRUGS (5)
  1. CYCLOPHOSPHAMIDE [Suspect]
     Active Substance: CYCLOPHOSPHAMIDE
     Indication: Breast cancer female
     Dosage: .8 G CYCLOPHOSPHAMIDE FOR INJECTION PLUS 100 ML NORMAL SALINE ONCE A DAY
     Route: 041
     Dates: start: 20210913, end: 20211003
  2. SODIUM CHLORIDE [Suspect]
     Active Substance: SODIUM CHLORIDE
     Indication: Medication dilution
     Dosage: .8 G CYCLOPHOSPHAMIDE FOR INJECTION PLUS 100 ML NORMAL SALINE ONCE A DAY
     Route: 041
     Dates: start: 20210913, end: 20211003
  3. DOCETAXEL [Suspect]
     Active Substance: DOCETAXEL
     Indication: Breast cancer female
     Route: 041
     Dates: start: 20210913, end: 20211025
  4. PERTUZUMAB [Suspect]
     Active Substance: PERTUZUMAB
     Indication: Breast cancer female
     Route: 041
     Dates: start: 20211003, end: 20211025
  5. TRASTUZUMAB [Suspect]
     Active Substance: TRASTUZUMAB
     Indication: Breast cancer female
     Route: 041
     Dates: start: 20210913, end: 20211025

REACTIONS (1)
  - Pneumonitis [Unknown]

NARRATIVE: CASE EVENT DATE: 20211023
